FAERS Safety Report 18093276 (Version 1)
Quarter: 2020Q3

REPORT INFORMATION
  Report Type: Spontaneous
  Country: US (occurrence: US)
  Receive Date: 20200730
  Receipt Date: 20200730
  Transmission Date: 20201103
  Serious: Yes (Hospitalization, Other)
  Sender: FDA-Public Use
  Company Number: US-CIPLA LTD.-2020US05053

PATIENT

DRUGS (5)
  1. ZOLPIDEM TARTRATE. [Suspect]
     Active Substance: ZOLPIDEM TARTRATE
     Indication: PRODUCT USED FOR UNKNOWN INDICATION
     Dosage: UNK
     Route: 065
  2. LAMOTRIGINE. [Suspect]
     Active Substance: LAMOTRIGINE
     Indication: DEPRESSION
     Dosage: UNK
     Route: 065
  3. COCAINE [Suspect]
     Active Substance: COCAINE
     Indication: PRODUCT USED FOR UNKNOWN INDICATION
     Dosage: UNK
     Route: 065
  4. OXYCODONE [Suspect]
     Active Substance: OXYCODONE
     Indication: PRODUCT USED FOR UNKNOWN INDICATION
     Dosage: UNK
     Route: 065
  5. BUSPIRONE [Suspect]
     Active Substance: BUSPIRONE HYDROCHLORIDE
     Indication: PRODUCT USED FOR UNKNOWN INDICATION
     Dosage: UNK
     Route: 065

REACTIONS (10)
  - Serotonin syndrome [Recovering/Resolving]
  - Acute respiratory failure [Recovering/Resolving]
  - Acute kidney injury [Recovering/Resolving]
  - Multiple organ dysfunction syndrome [Recovering/Resolving]
  - Disseminated intravascular coagulation [Recovering/Resolving]
  - Stress cardiomyopathy [Recovering/Resolving]
  - Cardiogenic shock [Recovering/Resolving]
  - Rhabdomyolysis [Recovering/Resolving]
  - Acute hepatic failure [Recovering/Resolving]
  - Drug abuse [Recovering/Resolving]
